FAERS Safety Report 9996703 (Version 1)
Quarter: 2014Q1

REPORT INFORMATION
  Report Type: Spontaneous
  Country: US (occurrence: US)
  Receive Date: 20140311
  Receipt Date: 20140311
  Transmission Date: 20141002
  Serious: No
  Sender: FDA-Public Use
  Company Number: US-GLAXOSMITHKLINE-A1015436A

PATIENT
  Age: 31 Year
  Sex: Male

DRUGS (4)
  1. NICORETTE FRUIT CHILL OTC 4MG [Suspect]
     Indication: EX-TOBACCO USER
  2. NICORETTE FRUIT CHILL OTC 2MG [Suspect]
     Indication: EX-TOBACCO USER
  3. NICORETTE MINT OTC 4MG [Suspect]
     Indication: EX-TOBACCO USER
  4. NICORETTE MINT OTC 2MG [Suspect]
     Indication: EX-TOBACCO USER

REACTIONS (3)
  - Intentional drug misuse [Unknown]
  - Nicotine dependence [Not Recovered/Not Resolved]
  - Product quality issue [Unknown]
